FAERS Safety Report 9293309 (Version 1)
Quarter: 2013Q2

REPORT INFORMATION
  Report Type: Spontaneous
  Country: US (occurrence: US)
  Receive Date: 20130516
  Receipt Date: 20130516
  Transmission Date: 20140414
  Serious: No
  Sender: FDA-Public Use
  Company Number: US-TEVA-405431USA

PATIENT
  Sex: Male

DRUGS (1)
  1. PROAIR HFA [Suspect]
     Route: 055
     Dates: start: 2013

REACTIONS (3)
  - Dysgeusia [Unknown]
  - Upper respiratory tract congestion [Unknown]
  - Feeling abnormal [Unknown]
